FAERS Safety Report 18882058 (Version 2)
Quarter: 2021Q1

REPORT INFORMATION
  Report Type: Spontaneous
  Country: TR (occurrence: TR)
  Receive Date: 20210211
  Receipt Date: 20210302
  Transmission Date: 20210420
  Serious: Yes (Other)
  Sender: FDA-Public Use
  Company Number: NVSC2021TR028410

PATIENT
  Age: 64 Year
  Sex: Male

DRUGS (2)
  1. ONEPTUS [Suspect]
     Active Substance: SACUBITRIL\VALSARTAN
     Indication: CARDIAC FAILURE
     Dosage: 200 MG, QD (97/103 MG), QD (STARTED FOR A YEAR)
     Route: 065
  2. ONEPTUS [Suspect]
     Active Substance: SACUBITRIL\VALSARTAN
     Dosage: 200 MG, QD (STARTED 4?5 MONTHS BEFORE)
     Route: 065

REACTIONS (5)
  - Hydrothorax [Recovering/Resolving]
  - Hair growth abnormal [Not Recovered/Not Resolved]
  - Therapeutic response unexpected [Unknown]
  - Cardiac failure [Recovering/Resolving]
  - Product availability issue [Unknown]
